FAERS Safety Report 12927724 (Version 1)
Quarter: 2016Q4

REPORT INFORMATION
  Report Type: Report from Study
  Country: FR (occurrence: FR)
  Receive Date: 20161109
  Receipt Date: 20161109
  Transmission Date: 20170207
  Serious: Yes (Hospitalization)
  Sender: FDA-Public Use
  Company Number: FR-ROCHE-1851866

PATIENT
  Age: 44 Year
  Sex: Male

DRUGS (13)
  1. METHOTREXATE. [Concomitant]
     Active Substance: METHOTREXATE
     Indication: RHEUMATOID ARTHRITIS
     Route: 065
  2. IXPRIM [Concomitant]
     Active Substance: ACETAMINOPHEN\TRAMADOL HYDROCHLORIDE
  3. ABILIFY [Concomitant]
     Active Substance: ARIPIPRAZOLE
     Dosage: 1 DF
     Route: 065
  4. RITUXIMAB [Suspect]
     Active Substance: RITUXIMAB
     Indication: RHEUMATOID ARTHRITIS
     Route: 065
     Dates: start: 200704, end: 20080116
  5. CORTANCYL [Concomitant]
     Active Substance: PREDNISONE
     Route: 065
  6. TRAMADOL. [Concomitant]
     Active Substance: TRAMADOL
     Dosage: 2 DF
     Route: 065
  7. TOBRADEX [Concomitant]
     Active Substance: DEXAMETHASONE\TOBRAMYCIN
     Dosage: 5 DROPS
     Route: 065
  8. DEROXAT [Concomitant]
     Active Substance: PAROXETINE HYDROCHLORIDE
     Dosage: 2 DF
     Route: 065
  9. ZOLOFT [Concomitant]
     Active Substance: SERTRALINE HYDROCHLORIDE
  10. TERCIAN [Concomitant]
     Active Substance: CYAMEMAZINE
     Dosage: 1 TO 2 DF
     Route: 065
  11. IMOVANE [Concomitant]
     Active Substance: ZOPICLONE
     Dosage: 1 DF
     Route: 065
  12. TOCILIZUMAB [Suspect]
     Active Substance: TOCILIZUMAB
     Dosage: NEW INFUSIONS ADMINISTERED ON 18/FEB/2011, 18/MAR/2011, 15/APR/2011, 27/MAY/2011, 21/JUL/2011, 19/AU
     Route: 041
  13. TOCILIZUMAB [Suspect]
     Active Substance: TOCILIZUMAB
     Indication: RHEUMATOID ARTHRITIS
     Dosage: 8 MG/KG. SUBSEQUENT THERAPIES WERE ADMINISTERED ON 24/JUN/2011, 16/SEP/2011, 14/OCT/2011, 10/NOV/201
     Route: 041
     Dates: start: 20110121

REACTIONS (5)
  - Hepatocellular injury [Recovered/Resolved]
  - Hepatitis C [Not Recovered/Not Resolved]
  - Cholestasis [Recovered/Resolved]
  - Ulcerative keratitis [Not Recovered/Not Resolved]
  - Tooth abscess [Unknown]

NARRATIVE: CASE EVENT DATE: 201104
